FAERS Safety Report 8329846-4 (Version None)
Quarter: 2012Q2

REPORT INFORMATION
  Report Type: 
  Country: None (occurrence: None)
  Receive Date: 20120430
  Receipt Date: 20120418
  Transmission Date: 20120825
  Serious: Yes (Congenital Anomaly)
  Sender: FDA-Public Use
  Company Number: 2012SP015600

PATIENT
  Sex: Male

DRUGS (1)
  1. IMPLANON [Suspect]
     Indication: MATERNAL EXPOSURE DURING PREGNANCY
     Dosage: UNK, TRPL
     Route: 064

REACTIONS (3)
  - FOETAL EXPOSURE DURING PREGNANCY [None]
  - RENAL FUSION ANOMALY [None]
  - VESICOURETERIC REFLUX [None]
